FAERS Safety Report 17269978 (Version 1)
Quarter: 2020Q1

REPORT INFORMATION
  Report Type: Spontaneous
  Country: US (occurrence: US)
  Receive Date: 20191223
  Receipt Date: 20191223
  Transmission Date: 20200409
  Serious: Yes (Life-Threatening)
  Sender: FDA-Public Use
  Company Number: None

PATIENT
  Age: 72 Year
  Sex: Male
  Weight: 83.01 kg

DRUGS (1)
  1. SOTALOL (SOTALOL HCL 80MG TAB) [Suspect]
     Active Substance: SOTALOL HYDROCHLORIDE
     Indication: HYPERTENSION
     Route: 048
     Dates: start: 20120101, end: 20191106

REACTIONS (1)
  - Palpitations [None]

NARRATIVE: CASE EVENT DATE: 20191107
